FAERS Safety Report 7994752-1 (Version None)
Quarter: 2011Q4

REPORT INFORMATION
  Report Type: 
  Country: None (occurrence: None)
  Receive Date: 20111217
  Receipt Date: 20111217
  Transmission Date: 20120403
  Serious: Yes (Other)
  Sender: FDA-Public Use
  Company Number: None

PATIENT
  Sex: Male

DRUGS (1)
  1. LISTERINE WHITENING (ORAL CARE PRODUCTS) LIQUID [Suspect]
     Indication: PRODUCT USED FOR UNKNOWN INDICATION
     Dosage: ORAL

REACTIONS (5)
  - TONGUE COATED [None]
  - TOOTH DISCOLOURATION [None]
  - DYSGEUSIA [None]
  - TONSILLOLITH [None]
  - APPLICATION SITE PAIN [None]
